FAERS Safety Report 18977125 (Version 2)
Quarter: 2021Q2

REPORT INFORMATION
  Report Type: Spontaneous
  Country: US (occurrence: US)
  Receive Date: 20210306
  Receipt Date: 20210607
  Transmission Date: 20210717
  Serious: No
  Sender: FDA-Public Use
  Company Number: US-SUN PHARMACEUTICAL INDUSTRIES LTD-2021R1-280841

PATIENT
  Age: 35 Year
  Sex: Female

DRUGS (1)
  1. CEQUA [Suspect]
     Active Substance: CYCLOSPORINE
     Indication: PRODUCT USED FOR UNKNOWN INDICATION
     Dosage: VIAL
     Route: 047
     Dates: start: 20210204

REACTIONS (9)
  - Otorrhoea [Unknown]
  - Feeling abnormal [Unknown]
  - Otitis externa [Unknown]
  - Foreign body sensation in eyes [Unknown]
  - Ocular hyperaemia [Unknown]
  - Insomnia [Unknown]
  - Headache [Unknown]
  - Dyspnoea [Unknown]
  - Fatigue [Unknown]

NARRATIVE: CASE EVENT DATE: 20210204
